FAERS Safety Report 12876163 (Version 1)
Quarter: 2016Q4

REPORT INFORMATION
  Report Type: Spontaneous
  Country: US (occurrence: US)
  Receive Date: 20161021
  Receipt Date: 20161021
  Transmission Date: 20170207
  Serious: Yes (Life-Threatening, Hospitalization, Disabling)
  Sender: FDA-Public Use
  Company Number: None

PATIENT
  Age: 47 Year
  Sex: Female
  Weight: 72.9 kg

DRUGS (3)
  1. CIPROFLOXACIN. [Suspect]
     Active Substance: CIPROFLOXACIN
     Indication: KIDNEY INFECTION
     Dosage: ?          QUANTITY:20 TABLET(S);?
     Route: 048
     Dates: start: 20161004, end: 20161006
  2. LOVASTATIN. [Concomitant]
     Active Substance: LOVASTATIN
  3. ASPIRIN. [Concomitant]
     Active Substance: ASPIRIN

REACTIONS (17)
  - Dyspnoea [None]
  - Chest pain [None]
  - Tinnitus [None]
  - Pelvic pain [None]
  - Cerebrovascular accident [None]
  - Abdominal pain [None]
  - Neuralgia [None]
  - Neck pain [None]
  - Loss of consciousness [None]
  - Headache [None]
  - Pain in extremity [None]
  - Vision blurred [None]
  - Nausea [None]
  - Cognitive disorder [None]
  - Memory impairment [None]
  - Dysphagia [None]
  - Vertigo [None]

NARRATIVE: CASE EVENT DATE: 20161005
